FAERS Safety Report 10572917 (Version 2)
Quarter: 2016Q1

REPORT INFORMATION
  Report Type: Spontaneous
  Country: GB (occurrence: GB)
  Receive Date: 20141110
  Receipt Date: 20160222
  Transmission Date: 20160525
  Serious: Yes (Hospitalization, Disabling, Other)
  Sender: FDA-Public Use
  Company Number: GB-RANBAXY-2014RR-87630

PATIENT

DRUGS (3)
  1. COCODAMOL [Concomitant]
     Active Substance: ACETAMINOPHEN\CODEINE PHOSPHATE
     Indication: PRODUCT USED FOR UNKNOWN INDICATION
     Route: 065
  2. IBROFEN [Concomitant]
     Indication: PRODUCT USED FOR UNKNOWN INDICATION
     Route: 065
  3. CIPROFLOXACIN. [Suspect]
     Active Substance: CIPROFLOXACIN
     Indication: PROSTATITIS
     Dosage: 4 WEEK COURSE GIVEN, 12 TABLETS TAKEN
     Route: 048
     Dates: start: 20140711

REACTIONS (8)
  - Burning sensation [Not Recovered/Not Resolved]
  - Eye pain [Not Recovered/Not Resolved]
  - Palpitations [Not Recovered/Not Resolved]
  - Medication error [Unknown]
  - Muscle twitching [Not Recovered/Not Resolved]
  - Arthralgia [Not Recovered/Not Resolved]
  - Muscle atrophy [Not Recovered/Not Resolved]
  - Myalgia [Not Recovered/Not Resolved]

NARRATIVE: CASE EVENT DATE: 20140714
